FAERS Safety Report 17297880 (Version 1)
Quarter: 2020Q1

REPORT INFORMATION
  Report Type: Spontaneous
  Country: ES (occurrence: ES)
  Receive Date: 20200121
  Receipt Date: 20200121
  Transmission Date: 20200409
  Serious: Yes (Hospitalization)
  Sender: FDA-Public Use
  Company Number: ES-MYLANLABS-2020M1005384

PATIENT
  Age: 45 Year
  Sex: Female

DRUGS (2)
  1. CISPLATINO [Suspect]
     Active Substance: CISPLATIN
     Indication: CHOLANGIOCARCINOMA
     Dosage: 2 CICLOS, 1? 27/05/2019 Y 2? 04/06/2019
     Route: 042
     Dates: start: 20190527, end: 20190604
  2. GEMCITABINE. [Suspect]
     Active Substance: GEMCITABINE
     Indication: CHOLANGIOCARCINOMA
     Dosage: 2 CICLOS 1? 27/05/2019 2? 04/06/2019
     Route: 042
     Dates: start: 20190527, end: 20190604

REACTIONS (2)
  - Vomiting [Recovered/Resolved]
  - Agranulocytosis [Recovered/Resolved]

NARRATIVE: CASE EVENT DATE: 20190609
